FAERS Safety Report 6140508-4 (Version None)
Quarter: 2009Q1

REPORT INFORMATION
  Report Type: 
  Country: None (occurrence: None)
  Receive Date: 20090331
  Receipt Date: 20090324
  Transmission Date: 20090719
  Serious: Yes (Death, Hospitalization)
  Sender: FDA-Public Use
  Company Number: 2009SP006379

PATIENT
  Sex: Male

DRUGS (2)
  1. PEG-INTRON [Suspect]
     Indication: DRUG USE FOR UNKNOWN INDICATION
     Dates: start: 20090201
  2. REBETOL [Suspect]
     Indication: DRUG USE FOR UNKNOWN INDICATION
     Dates: start: 20090201

REACTIONS (3)
  - CONFUSIONAL STATE [None]
  - DELUSION [None]
  - LUNG INFILTRATION [None]
